FAERS Safety Report 20447487 (Version 1)
Quarter: 2022Q1

REPORT INFORMATION
  Report Type: Spontaneous
  Country: US (occurrence: None)
  Receive Date: 20220209
  Receipt Date: 20220209
  Transmission Date: 20220423
  Serious: No
  Sender: FDA-Public Use
  Company Number: US-ROCHE-2964103

PATIENT
  Age: 63 Year
  Sex: Female

DRUGS (1)
  1. ROZLYTREK [Suspect]
     Active Substance: ENTRECTINIB
     Indication: Product used for unknown indication
     Route: 048
     Dates: start: 20211113

REACTIONS (4)
  - Balance disorder [Unknown]
  - Fatigue [Unknown]
  - Taste disorder [Unknown]
  - Nausea [Unknown]

NARRATIVE: CASE EVENT DATE: 20211122
